FAERS Safety Report 7071472-1 (Version None)
Quarter: 2010Q4

REPORT INFORMATION
  Report Type: 
  Country: None (occurrence: None)
  Receive Date: 20101029
  Receipt Date: 20090909
  Transmission Date: 20110411
  Serious: No
  Sender: FDA-Public Use
  Company Number: A0806555A

PATIENT
  Sex: Female

DRUGS (4)
  1. ADVAIR [Suspect]
     Indication: BRONCHITIS
     Dosage: 1PUFF TWICE PER DAY
     Route: 055
     Dates: start: 20090812, end: 20090903
  2. GELNIQUE [Suspect]
     Indication: URINARY INCONTINENCE
  3. METHYLPREDNISOLONE [Suspect]
     Indication: BRONCHITIS
  4. TUSSIONEX [Suspect]
     Indication: BRONCHITIS

REACTIONS (5)
  - EYE SWELLING [None]
  - FUNGAL INFECTION [None]
  - PRURITUS [None]
  - RASH PRURITIC [None]
  - SWELLING [None]
